FAERS Safety Report 5571010-6 (Version None)
Quarter: 2007Q4

REPORT INFORMATION
  Report Type: 
  Country: None (occurrence: None)
  Receive Date: 20071219
  Receipt Date: 20071126
  Transmission Date: 20080405
  Serious: Yes (Hospitalization, Other)
  Sender: FDA-Public Use
  Company Number: 2007VX002828

PATIENT
  Age: 54 Year
  Sex: Female
  Weight: 79.3795 kg

DRUGS (16)
  1. INTERFERON ALFACON-1 [Suspect]
     Indication: HEPATITIS C
     Dosage: 15 UG; QD; SC
     Route: 058
     Dates: start: 20070112, end: 20070320
  2. RIBAVIRIN [Suspect]
     Indication: HEPATITIS C
     Dosage: 1000 MG; QD; PO
     Route: 048
     Dates: start: 20070112, end: 20070320
  3. ALBUTEROL [Concomitant]
  4. OXYCONTIN [Concomitant]
  5. VICODIN [Concomitant]
  6. REMERON [Concomitant]
  7. WELLBUTRIN XL [Concomitant]
  8. RISPERDAL [Concomitant]
  9. NEXIUM [Concomitant]
  10. MEGACE ES [Concomitant]
  11. RESTORIL [Concomitant]
  12. AMBIEN CR [Concomitant]
  13. ALTACE [Concomitant]
  14. PROCARDIA XL [Concomitant]
  15. VALIUM [Concomitant]
  16. SYNTHROID [Concomitant]

REACTIONS (9)
  - ANAEMIA [None]
  - CHEST PAIN [None]
  - HYPERTENSION [None]
  - HYPOKALAEMIA [None]
  - HYPOVOLAEMIA [None]
  - PANIC ATTACK [None]
  - PSYCHOTIC DISORDER [None]
  - TACHYCARDIA [None]
  - TRANSIENT ISCHAEMIC ATTACK [None]
